FAERS Safety Report 6929983-2 (Version None)
Quarter: 2010Q3

REPORT INFORMATION
  Report Type: 
  Country: None (occurrence: None)
  Receive Date: 20100817
  Receipt Date: 20100817
  Transmission Date: 20110219
  Serious: No
  Sender: FDA-Public Use
  Company Number: None

PATIENT
  Sex: Male
  Weight: 133.3575 kg

DRUGS (2)
  1. CIPROFLOXACIN HCL [Suspect]
     Indication: LOCALISED INFECTION
     Dosage: 500MG TAB 1 EVERY 12 HR W/ FOOD
     Dates: start: 20100714, end: 20100725
  2. CIPROFLOXACIN HCL [Suspect]
     Indication: LOCALISED INFECTION
     Dosage: 500MG TAB 1 EVERY 12 HR W/ FOOD
     Dates: start: 20100713

REACTIONS (1)
  - UNEVALUABLE EVENT [None]
